FAERS Safety Report 8215908-9 (Version None)
Quarter: 2012Q1

REPORT INFORMATION
  Report Type: 
  Country: None (occurrence: None)
  Receive Date: 20120316
  Receipt Date: 20120307
  Transmission Date: 20120608
  Serious: Yes (Hospitalization, Other)
  Sender: FDA-Public Use
  Company Number: US-BAYER-2012-023582

PATIENT
  Age: 35 Year
  Sex: Female
  Weight: 113.83 kg

DRUGS (7)
  1. AMOXICILLIN [Concomitant]
     Dosage: 500MG 2 TABS 3 TIMES DAILY
  2. SIMVASTATIN [Concomitant]
     Dosage: 40 MG, QD
  3. FISH OIL [Concomitant]
     Dosage: 1000 MG, BID
  4. ASPIRIN [Concomitant]
     Dosage: 81 MG, QD
  5. METFORMIN HYDROCHLORIDE [Concomitant]
     Dosage: 850 MG, TID
  6. BYETTA [Concomitant]
     Dosage: 10 UNITS SUBCUTANEOUS TWICE DAILY
     Route: 058
  7. YASMIN [Suspect]
     Indication: CONTRACEPTION
     Dosage: UNK
     Route: 048

REACTIONS (1)
  - DEEP VEIN THROMBOSIS [None]
